FAERS Safety Report 10737564 (Version 1)
Quarter: 2015Q1

REPORT INFORMATION
  Report Type: Spontaneous
  Country: US (occurrence: None)
  Receive Date: 20150122
  Receipt Date: 20150122
  Transmission Date: 20150721
  Serious: Yes (Other)
  Sender: FDA-Public Use
  Company Number: None

PATIENT

DRUGS (5)
  1. SYNTHROID [Concomitant]
     Active Substance: LEVOTHYROXINE SODIUM
  2. WELLBUTRIN [Concomitant]
     Active Substance: BUPROPION HYDROCHLORIDE
  3. FORTEO [Suspect]
     Active Substance: TERIPARATIDE
  4. LAMICTAL [Concomitant]
     Active Substance: LAMOTRIGINE
  5. DILAUDID [Concomitant]
     Active Substance: HYDROMORPHONE HYDROCHLORIDE

REACTIONS (8)
  - Vomiting [None]
  - Gait disturbance [None]
  - Asthenia [None]
  - Nausea [None]
  - Dizziness [None]
  - Migraine [None]
  - Myalgia [None]
  - Disorientation [None]

NARRATIVE: CASE EVENT DATE: 201409
